FAERS Safety Report 24991722 (Version 1)
Quarter: 2025Q1

REPORT INFORMATION
  Report Type: Spontaneous
  Country: JP (occurrence: JP)
  Receive Date: 20250220
  Receipt Date: 20250220
  Transmission Date: 20250408
  Serious: Yes (Death, Other)
  Sender: ROCHE
  Company Number: JP-CHUGAI-2025004679

PATIENT
  Age: 7 Decade
  Sex: Male

DRUGS (4)
  1. CELLCEPT [Suspect]
     Active Substance: MYCOPHENOLATE MOFETIL
     Indication: Cholangitis
     Route: 050
  2. CELLCEPT [Suspect]
     Active Substance: MYCOPHENOLATE MOFETIL
     Route: 050
  3. URSODIOL [Concomitant]
     Active Substance: URSODIOL
     Indication: Cholangitis
     Route: 065
  4. PREDNISOLONE [Concomitant]
     Active Substance: PREDNISOLONE
     Indication: Cholangitis
     Route: 065

REACTIONS (4)
  - Arrhythmia [Fatal]
  - Neuralgia [Unknown]
  - Diarrhoea [Unknown]
  - Off label use [Unknown]
